FAERS Safety Report 8594707-2 (Version None)
Quarter: 2012Q3

REPORT INFORMATION
  Report Type: 
  Country: None (occurrence: None)
  Receive Date: 20120815
  Receipt Date: 20120809
  Transmission Date: 20120928
  Serious: Yes (Other)
  Sender: FDA-Public Use
  Company Number: JP-VERTEX PHARMACEUTICALS INC.-AE-2012-012030

PATIENT
  Age: 65 Year
  Sex: Female

DRUGS (7)
  1. RIBAVIRIN [Concomitant]
     Route: 048
     Dates: start: 20120628
  2. PEGASYS [Concomitant]
     Indication: HEPATITIS C
     Route: 058
     Dates: start: 20120628
  3. FEBURIC [Concomitant]
     Route: 048
     Dates: start: 20120703
  4. RIBAVIRIN [Concomitant]
     Route: 048
     Dates: start: 20120705, end: 20120809
  5. RIBAVIRIN [Concomitant]
     Indication: HEPATITIS C
     Route: 048
     Dates: start: 20120517, end: 20120621
  6. PEG-INTRON [Concomitant]
     Indication: HEPATITIS C
     Route: 058
     Dates: start: 20120517, end: 20120621
  7. TELAVIC (TELAPREVIR) [Suspect]
     Indication: HEPATITIS C
     Route: 048
     Dates: start: 20120628

REACTIONS (1)
  - NEUTROPHIL COUNT DECREASED [None]
